FAERS Safety Report 7260262-2 (Version None)
Quarter: 2011Q1

REPORT INFORMATION
  Report Type: 
  Country: None (occurrence: None)
  Receive Date: 20110130
  Receipt Date: 20100907
  Transmission Date: 20110831
  Serious: No
  Sender: FDA-Public Use
  Company Number: US-ABBOTT-10P-163-0670063-00

PATIENT
  Sex: Male
  Weight: 93.07 kg

DRUGS (3)
  1. HUMIRA [Suspect]
     Indication: RHEUMATOID ARTHRITIS
     Dates: start: 20100821
  2. METFORMIN [Concomitant]
     Indication: DIABETES MELLITUS
  3. METHOTREXATE [Concomitant]
     Indication: RHEUMATOID ARTHRITIS

REACTIONS (5)
  - BACK PAIN [None]
  - INCORRECT DOSE ADMINISTERED [None]
  - ARTHRALGIA [None]
  - RHEUMATOID ARTHRITIS [None]
  - INJECTION SITE REACTION [None]
